FAERS Safety Report 21534021 (Version 1)
Quarter: 2022Q4

REPORT INFORMATION
  Report Type: Report from Study
  Country: NL (occurrence: NL)
  Receive Date: 20221101
  Receipt Date: 20221101
  Transmission Date: 20230113
  Serious: Yes (Death, Other)
  Sender: FDA-Public Use
  Company Number: NL-ABBVIE-4182977

PATIENT
  Sex: Male

DRUGS (5)
  1. CARBIDOPA\LEVODOPA [Suspect]
     Active Substance: CARBIDOPA\LEVODOPA
     Indication: Parkinson^s disease
     Dosage: NIGHT MD: 0.0 ML, CND: 2.7  ML/H, END: 2.0 ML/DURATION TEXT: REMAINS AT 24 HOURS
     Route: 050
  2. CARBIDOPA\LEVODOPA [Suspect]
     Active Substance: CARBIDOPA\LEVODOPA
     Dosage: MD: 9.5 ML, CD: 3.4  ML/H, ED: 2.0 ML, NIGHT MD: 0.0 ML, CND: 2.7  ML/H, END: 2.0 ML/REMAINS AT 2...
     Route: 050
  3. CARBIDOPA\LEVODOPA [Suspect]
     Active Substance: CARBIDOPA\LEVODOPA
     Dosage: DURATION TEXT: REMAINS AT 24 HOURS
     Route: 050
     Dates: start: 20210504
  4. CARBIDOPA\LEVODOPA [Suspect]
     Active Substance: CARBIDOPA\LEVODOPA
     Dosage: MD: 8.5 ML, CD: 3.6  ML/H, ED: 2.0 ML/DURATION TEXT: REMAINS AT 24 HOURS
     Route: 050
  5. CARBIDOPA\LEVODOPA [Suspect]
     Active Substance: CARBIDOPA\LEVODOPA
     Dosage: MD: 9.5 ML, CD: 3.6  ML/H, ED: 2.0 ML/DURATION TEXT: REMAINS AT 24 HOURS

REACTIONS (4)
  - Small intestinal perforation [Fatal]
  - Multiple organ dysfunction syndrome [Fatal]
  - Bacterial abdominal infection [Fatal]
  - Sedative therapy [Fatal]

NARRATIVE: CASE EVENT DATE: 20221022
